FAERS Safety Report 8552849-1 (Version None)
Quarter: 2012Q3

REPORT INFORMATION
  Report Type: 
  Country: None (occurrence: None)
  Receive Date: 20120731
  Receipt Date: 20120726
  Transmission Date: 20120928
  Serious: Yes (Other)
  Sender: FDA-Public Use
  Company Number: PHHY2012AT064981

PATIENT
  Age: 76 Year
  Sex: Female
  Weight: 63 kg

DRUGS (10)
  1. SIMVASTATIN [Concomitant]
     Indication: HYPERLIPIDAEMIA
     Dosage: 40 MG, DAILY
     Route: 048
  2. TASIGNA [Suspect]
     Indication: CHRONIC MYELOID LEUKAEMIA
     Dosage: 400 MG, UNK
     Route: 048
     Dates: start: 20091009
  3. FUROHEXAL [Concomitant]
     Indication: CARDIOMYOPATHY
     Dosage: 160 MG, DAILY
     Route: 048
  4. ITERIUM [Concomitant]
     Indication: HYPERTENSION
     Dosage: 2 MG, DAILY
     Route: 048
  5. INSULIN [Concomitant]
     Indication: TYPE 2 DIABETES MELLITUS
     Route: 058
  6. ASPIRIN [Concomitant]
     Indication: PERIPHERAL ARTERIAL OCCLUSIVE DISEASE
     Dosage: 100 MG, DAILY
     Route: 048
  7. AMIODARONE HYDROCHLORIDE [Concomitant]
     Indication: ARRHYTHMIA
     Dosage: 200 MG, DAILY
     Route: 048
  8. SINTROM [Concomitant]
     Indication: CARDIOMYOPATHY
     Route: 048
  9. AQUAPHORIL [Concomitant]
     Indication: CARDIOMYOPATHY
     Dosage: 1 DF, DAILY
     Route: 048
  10. AMLODIPINE [Concomitant]
     Indication: HYPERTENSION
     Dosage: 5 MG, DAILY
     Route: 048

REACTIONS (1)
  - PERIPHERAL ARTERIAL OCCLUSIVE DISEASE [None]
